FAERS Safety Report 5104415-8 (Version None)
Quarter: 2006Q3

REPORT INFORMATION
  Report Type: 
  Country: None (occurrence: None)
  Receive Date: 20060908
  Receipt Date: 20060908
  Transmission Date: 20061208
  Serious: No
  Sender: FDA-Public Use
  Company Number: None

PATIENT
  Sex: Male
  Weight: 59.3759 kg

DRUGS (12)
  1. AMITRIPTYLINE HCL [Suspect]
     Indication: INSOMNIA
     Dosage: 25 MG ONCE NIGHTLY PO
     Route: 048
     Dates: start: 20040616, end: 20060423
  2. AMITRIPTYLINE HCL [Suspect]
     Indication: PAIN
     Dosage: 25 MG ONCE NIGHTLY PO
     Route: 048
     Dates: start: 20040616, end: 20060423
  3. ATROPINE 0.025/DIPHENOXYLATE [Concomitant]
  4. BISACODYL [Concomitant]
  5. CITALOPRAM HYDROBROMIDE [Concomitant]
  6. CITRATE OF MAGNESIA [Concomitant]
  7. CODEINE 30/ACETAMINOPHEN [Concomitant]
  8. DOCUSATE NA [Concomitant]
  9. HYDROCODONE 5/ACETAMINOPHEN [Concomitant]
  10. LACTULOSE [Concomitant]
  11. LISINOPRIL [Concomitant]
  12. PSYLLIUM SF [Concomitant]

REACTIONS (3)
  - AGITATION [None]
  - FEELING ABNORMAL [None]
  - INSOMNIA [None]
